FAERS Safety Report 6113790-7 (Version None)
Quarter: 2009Q1

REPORT INFORMATION
  Report Type: 
  Country: None (occurrence: None)
  Receive Date: 20090312
  Receipt Date: 20090306
  Transmission Date: 20090719
  Serious: Yes (Hospitalization)
  Sender: FDA-Public Use
  Company Number: FR-B.I. PHARMACEUTICALS,INC./RIDGEFIELD-2009-FF-00180FF

PATIENT
  Sex: Female

DRUGS (6)
  1. CLONIDINE HCL [Suspect]
     Indication: HYPERTENSION
     Dosage: .45MG
     Route: 048
  2. DETENSIEL [Concomitant]
     Indication: HYPERTENSION
     Dosage: 10MG
     Route: 048
  3. FOZITEC [Concomitant]
     Indication: HYPERTENSION
     Dosage: 20MG
     Route: 048
  4. VASTAREL [Concomitant]
     Indication: ANGINA PECTORIS
     Dosage: 60MG
     Route: 048
  5. MOPRAL [Concomitant]
     Indication: OESOPHAGITIS
     Dosage: 20MG
     Route: 048
  6. AMLOR [Concomitant]
     Indication: HYPERTENSION
     Dosage: 5MG
     Route: 048

REACTIONS (1)
  - ANAEMIA [None]
